FAERS Safety Report 8799996 (Version 2)
Quarter: 2012Q4

REPORT INFORMATION
  Report Type: Report from Study
  Country: GB (occurrence: GB)
  Receive Date: 20120921
  Receipt Date: 20121106
  Transmission Date: 20130627
  Serious: Yes (Hospitalization)
  Sender: FDA-Public Use
  Company Number: GB-ROCHE-1132620

PATIENT
  Sex: Female
  Weight: 130 kg

DRUGS (8)
  1. TOCILIZUMAB [Suspect]
     Indication: RHEUMATOID ARTHRITIS
     Dosage: last dose taken 03/Apr/2012
     Route: 065
     Dates: start: 20110818
  2. METHOTREXATE [Concomitant]
     Route: 065
  3. SULPHASALAZINE [Concomitant]
     Route: 065
  4. BISOPROLOL [Concomitant]
  5. WARFARIN [Concomitant]
  6. DICLOFENAC [Concomitant]
  7. OMEPRAZOLE [Concomitant]
  8. AMITRIPTYLINE [Concomitant]

REACTIONS (1)
  - Atrial fibrillation [Unknown]
